FAERS Safety Report 8359463-1 (Version None)
Quarter: 2012Q2

REPORT INFORMATION
  Report Type: 
  Country: None (occurrence: None)
  Receive Date: 20120514
  Receipt Date: 20120514
  Transmission Date: 20120825
  Serious: Yes (Hospitalization)
  Sender: FDA-Public Use
  Company Number: None

PATIENT
  Age: 65 Year
  Sex: Male
  Weight: 84.2 kg

DRUGS (1)
  1. MOXIFLOXACIN [Suspect]
     Indication: INFECTION
     Dosage: MG PO
     Route: 048

REACTIONS (2)
  - BONE MARROW FAILURE [None]
  - LEUKOPENIA [None]
